FAERS Safety Report 7776705-1 (Version None)
Quarter: 2011Q3

REPORT INFORMATION
  Report Type: 
  Country: None (occurrence: None)
  Receive Date: 20110926
  Receipt Date: 20110919
  Transmission Date: 20111222
  Serious: Yes (Hospitalization, Other)
  Sender: FDA-Public Use
  Company Number: FR-JNJFOC-20110712105

PATIENT
  Age: 67 Year
  Sex: Female
  Weight: 86 kg

DRUGS (8)
  1. XARELTO [Suspect]
     Indication: KNEE ARTHROPLASTY
     Route: 065
  2. ATORVASTATIN CALCIUM [Concomitant]
  3. CALCIUM CARBONATE [Concomitant]
  4. BETAHISTINE [Concomitant]
  5. ZOPICLONE [Concomitant]
  6. XARELTO [Suspect]
     Route: 065
  7. CANDESARTAN CILEXETIL AND HYDROCHLOROTHIAZIDE [Concomitant]
  8. ADALAT [Concomitant]

REACTIONS (2)
  - EPISTAXIS [None]
  - DEEP VEIN THROMBOSIS [None]
